FAERS Safety Report 6928250-0 (Version None)
Quarter: 2010Q3

REPORT INFORMATION
  Report Type: 
  Country: None (occurrence: None)
  Receive Date: 20100817
  Receipt Date: 20100812
  Transmission Date: 20110219
  Serious: Yes (Other)
  Sender: FDA-Public Use
  Company Number: RU-ROCHE-718735

PATIENT
  Age: 60 Year
  Sex: Male

DRUGS (3)
  1. XELODA [Suspect]
     Route: 048
     Dates: start: 20100721
  2. XELODA [Suspect]
     Route: 048
  3. OXALIPLATIN [Suspect]
     Route: 065
     Dates: start: 20100721

REACTIONS (2)
  - RASH [None]
  - STOMATITIS NECROTISING [None]
